FAERS Safety Report 23101148 (Version 1)
Quarter: 2023Q4

REPORT INFORMATION
  Report Type: Spontaneous
  Country: US (occurrence: None)
  Receive Date: 20231022
  Receipt Date: 20231022
  Transmission Date: 20240110
  Serious: Yes (Hospitalization)
  Sender: FDA-Public Use
  Company Number: None

PATIENT
  Age: 92 Year
  Sex: Male

DRUGS (2)
  1. IBUPROFEN [Suspect]
     Active Substance: IBUPROFEN
     Dates: start: 20230330, end: 20230412
  2. APIXABAN [Suspect]
     Active Substance: APIXABAN
     Dates: start: 20221021, end: 20230412

REACTIONS (3)
  - Post procedural haemorrhage [None]
  - Blood urine present [None]
  - Contraindicated product administered [None]

NARRATIVE: CASE EVENT DATE: 20230414
